FAERS Safety Report 14711466 (Version 1)
Quarter: 2018Q2

REPORT INFORMATION
  Report Type: Spontaneous
  Country: US (occurrence: US)
  Receive Date: 20180403
  Receipt Date: 20180403
  Transmission Date: 20180711
  Serious: No
  Sender: FDA-Public Use
  Company Number: US-009507513-1803USA011306

PATIENT
  Sex: Male

DRUGS (3)
  1. SINEMET [Suspect]
     Active Substance: CARBIDOPA\LEVODOPA
     Indication: PARKINSON^S DISEASE
     Dosage: 1 TABLET EVERY 3 HOUR
     Route: 048
     Dates: start: 2006
  2. REMERON [Concomitant]
     Active Substance: MIRTAZAPINE
  3. LEXAPRO [Concomitant]
     Active Substance: ESCITALOPRAM OXALATE

REACTIONS (2)
  - Drug effect decreased [Not Recovered/Not Resolved]
  - Product shape issue [Unknown]

NARRATIVE: CASE EVENT DATE: 2013
